FAERS Safety Report 16001402 (Version 3)
Quarter: 2019Q3

REPORT INFORMATION
  Report Type: Report from Study
  Country: US (occurrence: US)
  Receive Date: 20190225
  Receipt Date: 20190722
  Transmission Date: 20191004
  Serious: No
  Sender: FDA-Public Use
  Company Number: US-INCYTE CORPORATION-2018IN009805

PATIENT

DRUGS (1)
  1. JAKAFI [Suspect]
     Active Substance: RUXOLITINIB
     Indication: MYELOFIBROSIS
     Dosage: 15 MG, BID
     Route: 048
     Dates: start: 20180814

REACTIONS (8)
  - Nausea [Unknown]
  - Musculoskeletal stiffness [Unknown]
  - Contusion [Unknown]
  - Weight increased [Unknown]
  - Diarrhoea [Unknown]
  - Therapeutic product effect incomplete [Unknown]
  - Viral pharyngitis [Unknown]
  - Fatigue [Not Recovered/Not Resolved]
